FAERS Safety Report 4450763-4 (Version None)
Quarter: 2004Q3

REPORT INFORMATION
  Report Type: 
  Country: None (occurrence: None)
  Receive Date: 20040913
  Receipt Date: 20040913
  Transmission Date: 20050211
  Serious: No
  Sender: FDA-Public Use
  Company Number: None

PATIENT
  Sex: Female

DRUGS (4)
  1. MICARDIS [Suspect]
     Indication: HYPERTENSION
     Dosage: 40 MG DAILY
     Dates: start: 20030601
  2. SYNTHROID [Concomitant]
  3. PREMARIN [Concomitant]
  4. ZOCOR [Concomitant]

REACTIONS (3)
  - ANGIONEUROTIC OEDEMA [None]
  - RASH [None]
  - URTICARIA [None]
